FAERS Safety Report 11680386 (Version 2)
Quarter: 2015Q4

REPORT INFORMATION
  Report Type: Spontaneous
  Country: US (occurrence: US)
  Receive Date: 20151027
  Receipt Date: 20151104
  Transmission Date: 20160304
  Serious: No
  Sender: FDA-Public Use
  Company Number: US-ELI_LILLY_AND_COMPANY-US201007004197

PATIENT
  Age: 63 Year
  Sex: Female

DRUGS (2)
  1. FORTEO [Suspect]
     Active Substance: TERIPARATIDE
     Indication: OSTEOPOROSIS
     Dosage: 20 UG, QD
     Route: 065
     Dates: start: 201008
  2. FORTEO [Suspect]
     Active Substance: TERIPARATIDE
     Dosage: 20 UG, QD

REACTIONS (16)
  - Malaise [Unknown]
  - Injection site bruising [Unknown]
  - Arthralgia [Unknown]
  - Hypotonia [Unknown]
  - Injection site reaction [Unknown]
  - Pain in extremity [Unknown]
  - Nervousness [Unknown]
  - Musculoskeletal pain [Unknown]
  - Groin pain [Unknown]
  - Anxiety [Unknown]
  - Injection site discomfort [Unknown]
  - Drug ineffective [Unknown]
  - Bone pain [Unknown]
  - Fear [Unknown]
  - Bone disorder [Unknown]
  - Injection site pain [Unknown]

NARRATIVE: CASE EVENT DATE: 20100713
